FAERS Safety Report 4945050-1 (Version None)
Quarter: 2006Q1

REPORT INFORMATION
  Report Type: 
  Country: None (occurrence: None)
  Receive Date: 20060117
  Receipt Date: 20050730
  Transmission Date: 20060701
  Serious: Yes (Other)
  Sender: FDA-Public Use
  Company Number: FEI2005-1954

PATIENT
  Sex: Female

DRUGS (1)
  1. PARAGARD T380A (INTRAUTERINE CONTRACEPTIVES) [Suspect]
     Indication: CONTRACEPTION
     Dosage: INTRA-UTERINE
     Route: 015
     Dates: start: 20050301

REACTIONS (1)
  - UTERINE PERFORATION [None]
